FAERS Safety Report 7437482-7 (Version None)
Quarter: 2011Q2

REPORT INFORMATION
  Report Type: 
  Country: None (occurrence: None)
  Receive Date: 20110426
  Receipt Date: 20110414
  Transmission Date: 20111010
  Serious: Yes (Other)
  Sender: FDA-Public Use
  Company Number: PHHY2011JP31341

PATIENT
  Age: 69 Year
  Sex: Female

DRUGS (1)
  1. METHOTREXATE [Suspect]
     Dosage: 6 MG, QW

REACTIONS (9)
  - LYMPHOMA [None]
  - GINGIVAL ULCERATION [None]
  - ORAL DISORDER [None]
  - GINGIVITIS [None]
  - TOOTH LOSS [None]
  - TOOTHACHE [None]
  - PERIODONTITIS [None]
  - EPSTEIN-BARR VIRUS ASSOCIATED LYMPHOPROLIFERATIVE DISORDER [None]
  - GINGIVAL SWELLING [None]
